FAERS Safety Report 8874844 (Version 1)
Quarter: 2012Q4

REPORT INFORMATION
  Report Type: 
  Country: US (occurrence: US)
  Receive Date: 20121023
  Receipt Date: 20121023
  Transmission Date: 20130627
  Serious: No
  Sender: FDA-Public Use
  Company Number: US-PFIZER INC-2012259245

PATIENT

DRUGS (1)
  1. DEPO-PROVERA [Suspect]
     Dosage: UNK

REACTIONS (4)
  - Fatigue [Unknown]
  - Sensation of heaviness [Unknown]
  - Oedema peripheral [Unknown]
  - Pain in extremity [Unknown]
